FAERS Safety Report 8732518 (Version 2)
Quarter: 2012Q4

REPORT INFORMATION
  Report Type: 
  Country: FR (occurrence: FR)
  Receive Date: 20120820
  Receipt Date: 20120904
  Transmission Date: 20130627
  Serious: Yes (Hospitalization, Other)
  Sender: FDA-Public Use
  Company Number: FR-ROCHE-1098852

PATIENT
  Age: 86 Year
  Sex: Female

DRUGS (1)
  1. RITUXIMAB [Suspect]
     Indication: B-CELL LYMPHOMA
     Route: 065

REACTIONS (14)
  - Tetanus [Recovered/Resolved]
  - Musculoskeletal stiffness [Unknown]
  - Decreased immune responsiveness [Unknown]
  - Fall [Unknown]
  - Dysphagia [Unknown]
  - Gait disturbance [Unknown]
  - Dysarthria [Unknown]
  - Malnutrition [Unknown]
  - Muscle atrophy [Unknown]
  - Skin fragility [Unknown]
  - Splenomegaly [Unknown]
  - Pseudomonas infection [Unknown]
  - Fall [Unknown]
  - Pneumonia [Unknown]
